FAERS Safety Report 8454493-3 (Version None)
Quarter: 2012Q2

REPORT INFORMATION
  Report Type: 
  Country: None (occurrence: None)
  Receive Date: 20120621
  Receipt Date: 20120613
  Transmission Date: 20120825
  Serious: No
  Sender: FDA-Public Use
  Company Number: US-BIOGENIDEC-2012BI020988

PATIENT
  Age: 61 Year
  Sex: Female

DRUGS (4)
  1. TYSABRI [Suspect]
     Indication: MULTIPLE SCLEROSIS
     Route: 042
     Dates: start: 20050107
  2. AVONEX [Concomitant]
     Indication: MULTIPLE SCLEROSIS
     Route: 030
     Dates: start: 20030101
  3. TYSABRI [Suspect]
     Route: 042
     Dates: start: 20080214, end: 20080214
  4. TYSABRI [Suspect]
     Route: 042
     Dates: start: 20120509

REACTIONS (7)
  - BACK PAIN [None]
  - NECK PAIN [None]
  - OXYGEN SATURATION DECREASED [None]
  - COUGH [None]
  - NAUSEA [None]
  - DYSPNOEA [None]
  - ERYTHEMA [None]
